FAERS Safety Report 7341994-4 (Version None)
Quarter: 2011Q1

REPORT INFORMATION
  Report Type: 
  Country: None (occurrence: None)
  Receive Date: 20110309
  Receipt Date: 20110228
  Transmission Date: 20110831
  Serious: Yes (Hospitalization)
  Sender: FDA-Public Use
  Company Number: US-ELI_LILLY_AND_COMPANY-US201006003450

PATIENT
  Sex: Female

DRUGS (11)
  1. FORTEO [Suspect]
     Indication: OSTEOPOROSIS
     Dosage: 20 UG, DAILY (1/D)
     Dates: start: 20091218
  2. FORTEO [Suspect]
     Dosage: 20 UG, DAILY (1/D)
     Dates: start: 20091218
  3. FORTEO [Suspect]
     Dosage: 20 UG, DAILY (1/D)
  4. SYNTHROID [Concomitant]
     Dosage: 7.5 MG, UNK
  5. GINKGO BILOBA [Concomitant]
  6. VITAMIN D [Concomitant]
     Dosage: 1000 U, UNK
  7. FORTEO [Suspect]
     Dosage: 20 UG, DAILY (1/D)
  8. LUTEIN [Concomitant]
  9. MAGNESIUM [Concomitant]
  10. MULTI-VITAMIN [Concomitant]
     Dosage: UNK, DAILY (1/D)
  11. CALCIUM [Concomitant]

REACTIONS (9)
  - MUSCULOSKELETAL STIFFNESS [None]
  - ARTHRALGIA [None]
  - PAIN IN EXTREMITY [None]
  - DIZZINESS POSTURAL [None]
  - MUSCULAR WEAKNESS [None]
  - HEADACHE [None]
  - SURGERY [None]
  - MUSCLE SPASMS [None]
  - DRUG DOSE OMISSION [None]
